FAERS Safety Report 9031545 (Version 1)
Quarter: 2013Q1

REPORT INFORMATION
  Report Type: Spontaneous
  Country: US (occurrence: US)
  Receive Date: 20130124
  Receipt Date: 20130124
  Transmission Date: 20140127
  Serious: Yes (Hospitalization)
  Sender: FDA-Public Use
  Company Number: US-JNJFOC-20130109939

PATIENT
  Age: 78 Year
  Sex: Male
  Weight: 68.04 kg

DRUGS (3)
  1. PANCREAZE [Suspect]
     Indication: MALABSORPTION
     Dosage: BEFORE EACH MEAL
     Route: 048
  2. VASOTEC [Suspect]
     Indication: PLEURAL EFFUSION
     Route: 065
     Dates: start: 20121224, end: 20130115
  3. UNSPECIFED MEDICATIONS [Concomitant]
     Indication: PRODUCT USED FOR UNKNOWN INDICATION
     Route: 065

REACTIONS (7)
  - Cardiac failure congestive [Not Recovered/Not Resolved]
  - Pleural effusion [Unknown]
  - Vomiting [Recovered/Resolved]
  - Diarrhoea [Recovered/Resolved]
  - Loss of consciousness [Recovered/Resolved]
  - Blood count abnormal [Unknown]
  - Hypotension [Not Recovered/Not Resolved]
